FAERS Safety Report 10454033 (Version 1)
Quarter: 2014Q3

REPORT INFORMATION
  Report Type: Spontaneous
  Country: US (occurrence: US)
  Receive Date: 20140915
  Receipt Date: 20140915
  Transmission Date: 20150326
  Serious: No
  Sender: FDA-Public Use
  Company Number: US-BRISTOL-MYERS SQUIBB COMPANY-20931259

PATIENT
  Age: 76 Year
  Sex: Female
  Weight: 53.51 kg

DRUGS (12)
  1. VITAMIN E [Concomitant]
     Active Substance: .ALPHA.-TOCOPHEROL
     Dosage: 1 DF=VITAMIN E 200 IU
  2. VITAMIN C [Concomitant]
     Active Substance: ASCORBIC ACID
     Dosage: 1 DF=VITAMIN C 1000 IU
  3. CALCIUM CITRATE [Concomitant]
     Active Substance: CALCIUM CITRATE
     Dosage: CALCIUM CITRATE TWO 500MG TABS DAILY (1000MG)
  4. OMEPRAZOLE. [Concomitant]
     Active Substance: OMEPRAZOLE
  5. UBIDECARENONE [Concomitant]
     Active Substance: UBIDECARENONE
  6. LOVAZA [Concomitant]
     Active Substance: OMEGA-3-ACID ETHYL ESTERS
     Dosage: LOVAZA 1GM 2 TABS QAM AND 2 TABS QPM
  7. SELENIUM [Concomitant]
     Active Substance: SELENIUM
  8. CALCIUM CARBONATE. [Concomitant]
     Active Substance: CALCIUM CARBONATE
     Dosage: CALCIUM CARBONATE 600MG QPM
  9. RED YEAST RICE [Concomitant]
     Active Substance: DIETARY SUPPLEMENT
     Dosage: RED YEAST RICE 600MG BID (1200/DAY)
  10. VITAMIN A [Concomitant]
     Active Substance: VITAMIN A
     Dosage: 1 DF= ANTIOXIDANT BETA CAROTENE VITAMIN A 10,000 U
  11. ELIQUIS [Suspect]
     Active Substance: APIXABAN
  12. HYDROCHLOROTHIAZIDE. [Concomitant]
     Active Substance: HYDROCHLOROTHIAZIDE
     Dosage: HCTZ 25MG 1/2 DAILY

REACTIONS (2)
  - Dizziness [Unknown]
  - Headache [Unknown]
